FAERS Safety Report 6369499-8 (Version None)
Quarter: 2009Q3

REPORT INFORMATION
  Report Type: 
  Country: None (occurrence: None)
  Receive Date: 20090923
  Receipt Date: 20090911
  Transmission Date: 20100115
  Serious: Yes (Hospitalization)
  Sender: FDA-Public Use
  Company Number: JP-SANOFI-SYNTHELABO-A01200905736

PATIENT
  Sex: Male

DRUGS (7)
  1. KYTRIL [Concomitant]
     Indication: PREMEDICATION
     Dosage: UNK
     Route: 042
     Dates: start: 20090428, end: 20090428
  2. AVASTIN [Suspect]
     Indication: RECTAL CANCER METASTATIC
     Route: 042
     Dates: start: 20090428, end: 20090428
  3. FLUOROURACIL [Concomitant]
     Indication: RECTAL CANCER
     Route: 040
     Dates: start: 20090428, end: 20090428
  4. FLUOROURACIL [Concomitant]
     Route: 041
     Dates: start: 20080428, end: 20090429
  5. ELPLAT [Suspect]
     Indication: RECTAL CANCER METASTATIC
     Route: 041
     Dates: start: 20090428, end: 20090428
  6. DECADRON [Concomitant]
     Indication: PREMEDICATION
     Dosage: UNK
     Route: 042
     Dates: start: 20090428, end: 20090428
  7. LEVOLEUCOVORIN CALCIUM [Concomitant]
     Indication: RECTAL CANCER
     Route: 041
     Dates: start: 20080916, end: 20090101

REACTIONS (2)
  - DECREASED APPETITE [None]
  - URINARY RETENTION [None]
